FAERS Safety Report 19355620 (Version 1)
Quarter: 2021Q2

REPORT INFORMATION
  Report Type: Spontaneous
  Country: JP (occurrence: JP)
  Receive Date: 20210601
  Receipt Date: 20210601
  Transmission Date: 20210717
  Serious: Yes (Other)
  Sender: FDA-Public Use
  Company Number: JP-ROCHE-2839034

PATIENT
  Age: 6 Decade
  Sex: Female

DRUGS (2)
  1. TRASTUZUMAB BIOSIMILAR 1 [Concomitant]
     Active Substance: TRASTUZUMAB
     Indication: BREAST CANCER
     Route: 041
  2. PERJETA [Suspect]
     Active Substance: PERTUZUMAB
     Indication: BREAST CANCER
     Dosage: INJECTION 420MG/14ML
     Route: 041

REACTIONS (2)
  - Hepatic steatosis [Unknown]
  - Biliary colic [Unknown]
